FAERS Safety Report 8604740-X (Version None)
Quarter: 2012Q2

REPORT INFORMATION
  Report Type: 
  Country: None (occurrence: None)
  Receive Date: 20120423
  Receipt Date: 20091120
  Transmission Date: 20120825
  Serious: Yes (Other)
  Sender: FDA-Public Use
  Company Number: PHEH2009US14772

PATIENT
  Sex: Female

DRUGS (12)
  1. VITAMIN B (NO INGREDIENTS/SUBSTANCES) [Concomitant]
  2. CENTRUM SILVER (ASCORBIC ACID, CALCIUM, MINERALS NOS, RETINOL, TOCOPHE [Concomitant]
  3. OMEPRAZOLE [Concomitant]
  4. FOSAMAX [Concomitant]
  5. CELEBREX [Concomitant]
  6. SIMVASTATIN [Concomitant]
  7. CALCIUM WITH VITAMIN D (CALCIUM PHOSPHATE, CALCIUM SODIUM LACTATE, ERG [Concomitant]
  8. BIOTIN (BIOTIN) [Concomitant]
  9. GABAPENTIN [Concomitant]
  10. ACETAMINOPHEN [Concomitant]
  11. METHENAMINE AND SODIUM BIPHOSPHATE TAB (METHENAMINE, SODIUM PHOSPHATE [Concomitant]
  12. FEMARA [Suspect]
     Dosage: 2.5 MG

REACTIONS (1)
  - EYELID OEDEMA [None]
